FAERS Safety Report 23171249 (Version 2)
Quarter: 2024Q1

REPORT INFORMATION
  Report Type: Spontaneous
  Country: CA (occurrence: CA)
  Receive Date: 20231110
  Receipt Date: 20240118
  Transmission Date: 20240410
  Serious: Yes (Other)
  Sender: FDA-Public Use
  Company Number: CA-FreseniusKabi-FK202317926

PATIENT
  Age: 20 Year
  Sex: Female

DRUGS (6)
  1. ETOPOSIDE [Suspect]
     Active Substance: ETOPOSIDE
     Indication: Haemophagocytic lymphohistiocytosis
     Dosage: DOSAGE FORM: NOT SPECIFIED?ROA: UNKNOWN
  2. DEXAMETHASONE [Suspect]
     Active Substance: DEXAMETHASONE
     Indication: Haemophagocytic lymphohistiocytosis
     Dosage: ROA: UNKNOWN?FORM: NOT SPECIFIED
  3. HUMAN IMMUNOGLOBULIN G [Suspect]
     Active Substance: HUMAN IMMUNOGLOBULIN G
     Indication: Haemophagocytic lymphohistiocytosis
     Dosage: FORM: SOLUTION INTRAVENOUS?ROA: INTRAVENOUS
  4. METHOTREXATE [Suspect]
     Active Substance: METHOTREXATE
     Indication: Haemophagocytic lymphohistiocytosis
     Dosage: ROA: INTRATHECAL?FORM: NOT SPECIFIED
  5. RUXOLITINIB [Suspect]
     Active Substance: RUXOLITINIB
     Indication: Haemophagocytic lymphohistiocytosis
     Dosage: FORM: TABLETS?ROA: UNKNOWN
  6. RUXOLITINIB PHOSPHATE [Suspect]
     Active Substance: RUXOLITINIB PHOSPHATE
     Indication: Haemophagocytic lymphohistiocytosis

REACTIONS (2)
  - Neutropenia [Unknown]
  - Product use in unapproved indication [Unknown]
